FAERS Safety Report 9035699 (Version 1)
Quarter: 2013Q1

REPORT INFORMATION
  Report Type: Report from Study
  Country: US (occurrence: US)
  Receive Date: 20130129
  Receipt Date: 20130129
  Transmission Date: 20140127
  Serious: No
  Sender: FDA-Public Use
  Company Number: US-ABBOTT-12P-163-0925979-00

PATIENT
  Age: 13 Year
  Sex: Female

DRUGS (10)
  1. HUMIRA 40 MG/0.8 ML PEN [Suspect]
     Indication: CROHN^S DISEASE
     Dates: start: 201112
  2. METHOTREXATE [Concomitant]
     Indication: CROHN^S DISEASE
     Dosage: 2.5MG PILLS- 15MG WEEKLY
  3. CLARINEX [Concomitant]
     Indication: HYPERSENSITIVITY
     Dosage: 5MG/ML- 2 TEASPOONS PER DAY AS NEEDED
  4. FOLIC ACID [Concomitant]
     Indication: VITAMIN SUPPLEMENTATION
     Dosage: 1MG DAILY
  5. VITAMIN B 12 [Concomitant]
     Indication: VITAMIN SUPPLEMENTATION
     Route: 060
  6. VITAMIN C [Concomitant]
     Indication: VITAMIN SUPPLEMENTATION
     Dosage: 480 DAILY
  7. PROBIOTICS [Concomitant]
     Indication: COLON INJURY
     Dosage: DAILY
  8. FISH OIL [Concomitant]
     Indication: SUPPLEMENTATION THERAPY
     Dosage: DAILY
  9. CENTRUM MULTIVITAMIN FOR TEENS [Concomitant]
     Indication: VITAMIN SUPPLEMENTATION
     Dosage: DAILY
  10. HEP B VACCINE [Concomitant]
     Indication: PRODUCT USED FOR UNKNOWN INDICATION
     Dates: start: 20120411, end: 20120411

REACTIONS (2)
  - Hot flush [Not Recovered/Not Resolved]
  - Chills [Not Recovered/Not Resolved]
